FAERS Safety Report 9151293 (Version 1)
Quarter: 2013Q1

REPORT INFORMATION
  Report Type: Spontaneous
  Country: US (occurrence: US)
  Receive Date: 20130308
  Receipt Date: 20130308
  Transmission Date: 20140127
  Serious: Yes (Other)
  Sender: FDA-Public Use
  Company Number: US-ASTELLAS-2013US000014

PATIENT
  Age: 82 Year
  Sex: Male

DRUGS (2)
  1. XTANDI [Suspect]
     Indication: PROSTATE CANCER
     Dosage: 160 MG, UID/QD
     Route: 048
     Dates: start: 20121130, end: 20130110
  2. ATIVAN [Concomitant]
     Indication: ANXIETY
     Dosage: UNK
     Route: 065

REACTIONS (10)
  - Drug ineffective [Unknown]
  - Disease progression [Unknown]
  - Metastases to lymph nodes [Unknown]
  - Metastases to bone [Unknown]
  - Discomfort [Unknown]
  - Sensorimotor disorder [Unknown]
  - Decreased appetite [Unknown]
  - Muscular weakness [Unknown]
  - Fatigue [Not Recovered/Not Resolved]
  - Anxiety [Unknown]
